FAERS Safety Report 5941709-8 (Version None)
Quarter: 2008Q4

REPORT INFORMATION
  Report Type: 
  Country: None (occurrence: None)
  Receive Date: 20081105
  Receipt Date: 20081021
  Transmission Date: 20090506
  Serious: Yes (Other)
  Sender: FDA-Public Use
  Company Number: FR-ELI_LILLY_AND_COMPANY-FR200810005192

PATIENT
  Sex: Female

DRUGS (1)
  1. HUMALOG [Suspect]
     Dosage: UNK, UNKNOWN
     Route: 058

REACTIONS (1)
  - HYPERGLYCAEMIA [None]
